FAERS Safety Report 7306700-8 (Version None)
Quarter: 2011Q1

REPORT INFORMATION
  Report Type: 
  Country: None (occurrence: None)
  Receive Date: 20110222
  Receipt Date: 20110215
  Transmission Date: 20110831
  Serious: Yes (Other)
  Sender: FDA-Public Use
  Company Number: US-US-EMD SERONO, INC.-7002819

PATIENT
  Sex: Female
  Weight: 137 kg

DRUGS (6)
  1. REBIF [Suspect]
     Indication: MULTIPLE SCLEROSIS
     Dates: start: 20070101
  2. REBIF [Suspect]
     Route: 058
     Dates: start: 20080723
  3. CITALOPRAM HYDROBROMIDE [Concomitant]
     Indication: DEPRESSION
  4. NAPROXEN [Concomitant]
  5. PHENTERMINE [Concomitant]
     Indication: FATIGUE
  6. WELLBUTRIN XL [Concomitant]
     Indication: DEPRESSION

REACTIONS (2)
  - GALLBLADDER NON-FUNCTIONING [None]
  - INJECTION SITE HAEMATOMA [None]
